FAERS Safety Report 17683971 (Version 1)
Quarter: 2020Q2

REPORT INFORMATION
  Report Type: Spontaneous
  Country: DE (occurrence: DE)
  Receive Date: 20200420
  Receipt Date: 20200420
  Transmission Date: 20200714
  Serious: Yes (Other)
  Sender: FDA-Public Use
  Company Number: DE-ASTELLAS-2020US013633

PATIENT
  Sex: Male

DRUGS (4)
  1. TAMSULOSIN [Suspect]
     Active Substance: TAMSULOSIN
     Indication: PRODUCT USED FOR UNKNOWN INDICATION
     Dosage: 1 DF, ONCE DAILY (IN MORNING)
     Route: 065
     Dates: end: 201901
  2. DUODART [Suspect]
     Active Substance: DUTASTERIDE\TAMSULOSIN
     Indication: PROSTATOMEGALY
     Dosage: UNK UNK, UNKNOWN FREQ.
     Route: 065
     Dates: start: 201801, end: 201901
  3. VESIKUR [Suspect]
     Active Substance: SOLIFENACIN SUCCINATE
     Indication: PRODUCT USED FOR UNKNOWN INDICATION
     Dosage: UNK UNK, UNKNOWN FREQ.
     Route: 065
     Dates: start: 2018, end: 2018
  4. CRESTOR [Suspect]
     Active Substance: ROSUVASTATIN CALCIUM
     Indication: BLOOD CHOLESTEROL INCREASED
     Route: 065
     Dates: start: 2010

REACTIONS (8)
  - Dry throat [Unknown]
  - Dry mouth [Unknown]
  - Prostatomegaly [Unknown]
  - Frequent bowel movements [Unknown]
  - Hepatic steatosis [Unknown]
  - Product taste abnormal [Unknown]
  - Prostatic specific antigen increased [Unknown]
  - Dysgeusia [Unknown]
